FAERS Safety Report 4867005-8 (Version None)
Quarter: 2005Q4

REPORT INFORMATION
  Report Type: 
  Country: None (occurrence: None)
  Receive Date: 20051222
  Receipt Date: 20051208
  Transmission Date: 20060501
  Serious: Yes (Hospitalization)
  Sender: FDA-Public Use
  Company Number: PAR_0446_2005

PATIENT
  Sex: Male

DRUGS (2)
  1. IBUPROFEN [Suspect]
     Dosage: 6000 MG ONCE PO
     Route: 048
  2. MICARDIS HCT [Suspect]
     Dosage: DF ONCE PO
     Route: 048

REACTIONS (4)
  - DRUG ABUSER [None]
  - NAUSEA [None]
  - SUICIDE ATTEMPT [None]
  - VOMITING [None]
